FAERS Safety Report 10199810 (Version 2)
Quarter: 2014Q3

REPORT INFORMATION
  Report Type: Spontaneous
  Country: US (occurrence: US)
  Receive Date: 20140527
  Receipt Date: 20140714
  Transmission Date: 20150326
  Serious: No
  Sender: FDA-Public Use
  Company Number: US-009507513-1403USA014262

PATIENT
  Age: 82 Year
  Sex: Female
  Weight: 47.62 kg

DRUGS (1)
  1. OXYTROL FOR WOMEN [Suspect]
     Active Substance: OXYBUTYNIN
     Indication: POLYURIA
     Dosage: UNK UNK, UNKNOWN
     Route: 062
     Dates: start: 201402

REACTIONS (5)
  - Drug administered at inappropriate site [Unknown]
  - Application site rash [Recovered/Resolved]
  - Drug ineffective [Unknown]
  - Application site erythema [Recovered/Resolved]
  - Inappropriate schedule of drug administration [Unknown]

NARRATIVE: CASE EVENT DATE: 2014
